FAERS Safety Report 12242984 (Version 1)
Quarter: 2016Q2

REPORT INFORMATION
  Report Type: Spontaneous
  Country: JP (occurrence: JP)
  Receive Date: 20160406
  Receipt Date: 20160406
  Transmission Date: 20160815
  Serious: Yes (Death, Other)
  Sender: FDA-Public Use
  Company Number: JP-009507513-1602JPN012939

PATIENT
  Age: 76 Year
  Sex: Male
  Weight: 42 kg

DRUGS (10)
  1. MEROPENEM. [Concomitant]
     Active Substance: MEROPENEM
     Indication: BACTERAEMIA
     Dosage: 0.5 G, BID
     Route: 041
     Dates: start: 20140323, end: 20140416
  2. MAINTATE [Concomitant]
     Active Substance: BISOPROLOL FUMARATE
     Indication: ARRHYTHMIA
     Dosage: 5 MG, QD
     Route: 048
  3. SERENACE [Concomitant]
     Active Substance: HALOPERIDOL
     Indication: DELIRIUM
     Dosage: 5 MG, QD
     Route: 041
     Dates: start: 20140327, end: 20140416
  4. CUBICIN [Suspect]
     Active Substance: DAPTOMYCIN
     Indication: BACTERAEMIA
     Dosage: DAILY DOSAGE UNKNOWN
     Route: 041
     Dates: start: 20140121, end: 20140207
  5. ITOROL [Concomitant]
     Active Substance: ISOSORBIDE MONONITRATE
     Indication: CARDIAC FAILURE
     Dosage: 20 MG, BID
     Route: 048
     Dates: end: 20140409
  6. CUBICIN [Suspect]
     Active Substance: DAPTOMYCIN
     Dosage: 200 MG, QOD, DIVIDED DOSE FREQUENCY UNKNOWN
     Route: 041
     Dates: start: 20140217, end: 20140416
  7. SIGMART [Concomitant]
     Active Substance: NICORANDIL
     Indication: CARDIAC FAILURE
     Dosage: 5 MG, TID
     Route: 048
     Dates: end: 20140409
  8. LENDORMIN D [Concomitant]
     Active Substance: BROTIZOLAM
     Indication: INSOMNIA
     Dosage: 0.25 MG, QD
     Route: 048
     Dates: end: 20140409
  9. REFLEX [Concomitant]
     Active Substance: MIRTAZAPINE
     Indication: INSOMNIA
     Dosage: 15 MG, QD
     Route: 048
     Dates: end: 20140409
  10. TAKEPRON [Concomitant]
     Active Substance: LANSOPRAZOLE
     Indication: PROPHYLAXIS AGAINST GASTROINTESTINAL ULCER
     Dosage: 30 MG, QD
     Route: 048

REACTIONS (2)
  - Staphylococcal sepsis [Fatal]
  - Drug resistance [Unknown]

NARRATIVE: CASE EVENT DATE: 2014
